FAERS Safety Report 25434192 (Version 1)
Quarter: 2025Q2

REPORT INFORMATION
  Report Type: Spontaneous
  Country: US (occurrence: US)
  Receive Date: 20250613
  Receipt Date: 20250613
  Transmission Date: 20250717
  Serious: Yes (Death, Other)
  Sender: SANOFI AVENTIS
  Company Number: US-SA-2025SA167810

PATIENT
  Age: 66 Year
  Sex: Male
  Weight: 92.971 kg

DRUGS (1)
  1. DUPIXENT [Suspect]
     Active Substance: DUPILUMAB
     Indication: Dermatitis atopic
     Dosage: 300 MG, QOW
     Route: 058

REACTIONS (3)
  - Death [Fatal]
  - Complication associated with device [Unknown]
  - Heart transplant [Unknown]

NARRATIVE: CASE EVENT DATE: 20250527
